FAERS Safety Report 4357982-6 (Version None)
Quarter: 2004Q2

REPORT INFORMATION
  Report Type: 
  Country: None (occurrence: None)
  Receive Date: 20040510
  Receipt Date: 20040427
  Transmission Date: 20050107
  Serious: Yes (Death, Hospitalization)
  Sender: FDA-Public Use
  Company Number: 163-20785-04040656

PATIENT
  Age: 63 Year
  Sex: Female
  Weight: 98.4306 kg

DRUGS (7)
  1. THALOMID [Suspect]
     Indication: SMALL CELL LUNG CANCER STAGE UNSPECIFIED
     Dosage: 200 MG, DAILY, ORAL
     Route: 048
     Dates: start: 20021114, end: 20021124
  2. ZESTRIL [Concomitant]
  3. GLIPIZIDE [Concomitant]
  4. COMPAZINE [Concomitant]
  5. LANSOPRAZOLE [Concomitant]
  6. POTASSIUM (POTASSIUM) [Concomitant]
  7. OXYCODONE HCL [Concomitant]

REACTIONS (6)
  - DYSPHAGIA [None]
  - DYSPNOEA EXERTIONAL [None]
  - MALIGNANT NEOPLASM PROGRESSION [None]
  - METASTASES TO CENTRAL NERVOUS SYSTEM [None]
  - METASTASES TO THE MEDIASTINUM [None]
  - NEUROPATHY [None]
